FAERS Safety Report 25632014 (Version 1)
Quarter: 2025Q3

REPORT INFORMATION
  Report Type: Report from Study
  Country: IN (occurrence: IN)
  Receive Date: 20250801
  Receipt Date: 20250801
  Transmission Date: 20251021
  Serious: Yes (Other)
  Sender: ROCHE
  Company Number: IN-ROCHE-10000253779

PATIENT
  Age: 70 Year
  Sex: Male

DRUGS (1)
  1. PERTUZUMAB\TRASTUZUMAB [Suspect]
     Active Substance: PERTUZUMAB\TRASTUZUMAB
     Indication: Breast cancer metastatic
     Route: 058
     Dates: start: 20240511

REACTIONS (6)
  - Off label use [Unknown]
  - Dizziness [Unknown]
  - Urine flow decreased [Unknown]
  - Dysuria [Unknown]
  - Nodule [Unknown]
  - Brain oedema [Unknown]
